FAERS Safety Report 13770921 (Version 9)
Quarter: 2020Q3

REPORT INFORMATION
  Report Type: Spontaneous
  Country: BR (occurrence: BR)
  Receive Date: 20170720
  Receipt Date: 20200906
  Transmission Date: 20201102
  Serious: Yes (Hospitalization)
  Sender: FDA-Public Use
  Company Number: BR-AMGEN-BRASP2012011603

PATIENT
  Age: 49 Year
  Sex: Female
  Weight: 65 kg

DRUGS (14)
  1. ARFLEX [Concomitant]
     Active Substance: NIMESULIDE
     Dosage: 200 MILLIGRAM, UNK
  2. ENBREL [Suspect]
     Active Substance: ETANERCEPT
     Dosage: UNK
     Route: 065
  3. DIPYRONE [Concomitant]
     Active Substance: DIPYRONE
     Dosage: UNK
  4. ENBREL [Suspect]
     Active Substance: ETANERCEPT
     Dosage: 50 MG (SOLUTION FOR INJECTION IN PRE?FILLED PEN), ONCE A WEEK
     Route: 058
     Dates: start: 201201
  5. RIVOTRIL [Concomitant]
     Active Substance: CLONAZEPAM
     Indication: NERVE INJURY
     Dosage: 2 MG, UNK
  6. ACTOS [Concomitant]
     Active Substance: PIOGLITAZONE HYDROCHLORIDE
     Indication: GLUCOSE TOLERANCE IMPAIRED
     Dosage: 15 MG, UNK
  7. DOLAMIN FLEX [Concomitant]
     Active Substance: CLONIXIN\CYCLOBENZAPRINE
     Dosage: UNK
     Dates: end: 201710
  8. ENBREL [Suspect]
     Active Substance: ETANERCEPT
     Indication: PSORIATIC ARTHROPATHY
     Dosage: 1 APPLICATION OF 50 MG PER WEEK
     Route: 065
     Dates: start: 2011
  9. ENBREL [Suspect]
     Active Substance: ETANERCEPT
     Dosage: UNK
     Route: 065
  10. ENBREL [Suspect]
     Active Substance: ETANERCEPT
     Dosage: UNK
     Route: 065
     Dates: start: 2011
  11. DIOVAN [Concomitant]
     Active Substance: VALSARTAN
     Indication: BLOOD PRESSURE INCREASED
     Dosage: 320 MG, UNK
  12. ARFLEX [Concomitant]
     Active Substance: NIMESULIDE
     Dosage: UNK
  13. JANUVIA [Concomitant]
     Active Substance: SITAGLIPTIN PHOSPHATE
     Dosage: UNK
  14. DIPIRONA [Concomitant]
     Active Substance: METAMIZOLE
     Indication: PAIN
     Dosage: UNK, AS NEEDED

REACTIONS (12)
  - Condition aggravated [Recovered/Resolved]
  - Skin discolouration [Unknown]
  - Pain [Not Recovered/Not Resolved]
  - Therapeutic product effect incomplete [Recovered/Resolved]
  - Device difficult to use [Unknown]
  - Injection site pain [Unknown]
  - Arthralgia [Not Recovered/Not Resolved]
  - Wrong technique in device usage process [Unknown]
  - Injection site bruising [Unknown]
  - Hypotonia [Unknown]
  - Blood pressure increased [Recovered/Resolved]
  - Pain in extremity [Unknown]
